FAERS Safety Report 5951657-5 (Version None)
Quarter: 2008Q4

REPORT INFORMATION
  Report Type: 
  Country: None (occurrence: None)
  Receive Date: 20081113
  Receipt Date: 20081031
  Transmission Date: 20090506
  Serious: Yes (Death)
  Sender: FDA-Public Use
  Company Number: GB-GENENTECH-271004

PATIENT
  Age: 43 Year
  Sex: Male

DRUGS (4)
  1. MABTHERA [Suspect]
     Indication: ANKYLOSING SPONDYLITIS
     Dosage: 2 G, UNK
     Route: 042
     Dates: start: 20061010
  2. AMLODIPINE [Concomitant]
     Indication: HYPERTENSION
  3. DICLOFENAC SODIUM [Concomitant]
     Indication: DRUG USE FOR UNKNOWN INDICATION
     Dosage: UNK
     Dates: start: 20020101
  4. SULFASALAZINE [Concomitant]
     Indication: DRUG USE FOR UNKNOWN INDICATION
     Dosage: UNK G, UNK

REACTIONS (1)
  - MALIGNANT MELANOMA [None]
